FAERS Safety Report 5476707-4 (Version None)
Quarter: 2007Q4

REPORT INFORMATION
  Report Type: 
  Country: None (occurrence: None)
  Receive Date: 20071002
  Receipt Date: 20070917
  Transmission Date: 20080405
  Serious: Yes (Death, Other)
  Sender: FDA-Public Use
  Company Number: 2007US-10223

PATIENT
  Age: 87 Year
  Sex: Male

DRUGS (1)
  1. ISOTRETINOIN [Suspect]
     Indication: FOLLICULITIS
     Dosage: 20 MG, 1-2 TIMES WEEKLY

REACTIONS (1)
  - DEATH [None]
